FAERS Safety Report 23189942 (Version 4)
Quarter: 2023Q4

REPORT INFORMATION
  Report Type: Report from Study
  Country: CA (occurrence: CA)
  Receive Date: 20231116
  Receipt Date: 20231214
  Transmission Date: 20240110
  Serious: Yes (Other)
  Sender: FDA-Public Use
  Company Number: CA-JNJFOC-20221044190

PATIENT
  Age: 52 Year
  Sex: Female
  Weight: 113 kg

DRUGS (8)
  1. REMICADE [Suspect]
     Active Substance: INFLIXIMAB
     Indication: Crohn^s disease
     Dosage: ON 11-MAY-2023, RECEIVED 7TH INFLIXIMAB, RECOMBINANT INFUSION OF 600 MG AND PARTIAL HARVEY-BRADSHAW
     Route: 042
     Dates: start: 20221005
  2. REMICADE [Suspect]
     Active Substance: INFLIXIMAB
     Dosage: EXPIRATION DATE: 28-FEB-2026
     Route: 042
  3. REMICADE [Suspect]
     Active Substance: INFLIXIMAB
     Route: 042
  4. REMICADE [Suspect]
     Active Substance: INFLIXIMAB
     Route: 041
  5. CONTRAVE [Suspect]
     Active Substance: BUPROPION HYDROCHLORIDE\NALTREXONE HYDROCHLORIDE
     Indication: Product used for unknown indication
     Route: 065
     Dates: end: 202210
  6. BUDESONIDE [Suspect]
     Active Substance: BUDESONIDE
     Indication: Product used for unknown indication
     Dosage: SLOW RELEASE MEDICATION
     Route: 065
     Dates: start: 20230201
  7. METHOTREXATE [Concomitant]
     Active Substance: METHOTREXATE
     Indication: Product used for unknown indication
     Dosage: DRUG STOPPED
     Route: 058
     Dates: start: 202211
  8. PREDNISONE [Concomitant]
     Active Substance: PREDNISONE
     Indication: Product used for unknown indication
     Route: 065

REACTIONS (43)
  - Haematochezia [Recovered/Resolved]
  - Flank pain [Not Recovered/Not Resolved]
  - Cholangitis sclerosing [Unknown]
  - Flatulence [Not Recovered/Not Resolved]
  - Oesophageal ulcer [Unknown]
  - Ileal ulcer [Unknown]
  - Gastric ulcer [Unknown]
  - Alopecia [Not Recovered/Not Resolved]
  - Back pain [Not Recovered/Not Resolved]
  - Frequent bowel movements [Not Recovered/Not Resolved]
  - Diarrhoea [Unknown]
  - Fatigue [Unknown]
  - Crohn^s disease [Unknown]
  - Blood pressure increased [Unknown]
  - Sinusitis [Not Recovered/Not Resolved]
  - Ulcer [Unknown]
  - Mouth ulceration [Unknown]
  - Defaecation urgency [Not Recovered/Not Resolved]
  - Stomatitis [Not Recovered/Not Resolved]
  - Oropharyngeal pain [Recovered/Resolved]
  - Oesophageal pain [Not Recovered/Not Resolved]
  - Cheilitis [Recovered/Resolved]
  - Oral pain [Not Recovered/Not Resolved]
  - Skin lesion [Recovered/Resolved]
  - Discomfort [Unknown]
  - Cholelithiasis [Not Recovered/Not Resolved]
  - Gastrointestinal disorder [Not Recovered/Not Resolved]
  - Weight increased [Unknown]
  - Decreased appetite [Recovering/Resolving]
  - Obstructive sleep apnoea syndrome [Unknown]
  - Arthralgia [Not Recovered/Not Resolved]
  - Rash [Unknown]
  - Constipation [Unknown]
  - Abdominal pain [Not Recovered/Not Resolved]
  - Dyspepsia [Not Recovered/Not Resolved]
  - Abdominal discomfort [Unknown]
  - Hepatic enzyme increased [Not Recovered/Not Resolved]
  - Dizziness [Recovering/Resolving]
  - Pain [Recovering/Resolving]
  - Arthralgia [Unknown]
  - COVID-19 [Not Recovered/Not Resolved]
  - Therapeutic product effect incomplete [Unknown]
  - General physical health deterioration [Unknown]

NARRATIVE: CASE EVENT DATE: 20221001
